FAERS Safety Report 4878882-9 (Version None)
Quarter: 2006Q1

REPORT INFORMATION
  Report Type: 
  Country: None (occurrence: None)
  Receive Date: 20060110
  Receipt Date: 20060110
  Transmission Date: 20060701
  Serious: Yes (Hospitalization)
  Sender: FDA-Public Use
  Company Number: None

PATIENT
  Sex: Male
  Weight: 71.8 kg

DRUGS (2)
  1. DIDANOSINE [Suspect]
     Indication: HIV INFECTION
     Dosage: 125 MG DAILY PO
     Route: 048
     Dates: start: 20040201, end: 20051001
  2. STAVUDINE [Suspect]
     Indication: HIV INFECTION
     Dosage: 20 MG DAILY PO
     Route: 048
     Dates: start: 20030501, end: 20051001

REACTIONS (4)
  - CHEST PAIN [None]
  - DRUG TOXICITY [None]
  - HAEMODIALYSIS [None]
  - PANCREATITIS [None]
